FAERS Safety Report 6004789-X (Version None)
Quarter: 2008Q4

REPORT INFORMATION
  Report Type: 
  Country: None (occurrence: None)
  Receive Date: 20081216
  Receipt Date: 20081210
  Transmission Date: 20090506
  Serious: Yes (Hospitalization)
  Sender: FDA-Public Use
  Company Number: US-ASTRAZENECA-2008UW27692

PATIENT
  Age: 679 Month
  Sex: Male

DRUGS (1)
  1. TOPROL-XL [Suspect]
     Route: 048
     Dates: end: 20081201

REACTIONS (2)
  - CARDIAC DISORDER [None]
  - PANCREATIC DISORDER [None]
